FAERS Safety Report 18438355 (Version 2)
Quarter: 2020Q4

REPORT INFORMATION
  Report Type: Spontaneous
  Country: US (occurrence: US)
  Receive Date: 20201028
  Receipt Date: 20201209
  Transmission Date: 20210114
  Serious: Yes (Death, Other)
  Sender: FDA-Public Use
  Company Number: US-LUNDBECK-DKLU3022936

PATIENT
  Age: 70 Year
  Sex: Male

DRUGS (2)
  1. NORTHERA [Suspect]
     Active Substance: DROXIDOPA
     Indication: ORTHOSTATIC HYPOTENSION
  2. NORTHERA [Suspect]
     Active Substance: DROXIDOPA
     Indication: AUTONOMIC NEUROPATHY
     Route: 048
     Dates: start: 20191025

REACTIONS (2)
  - Lung adenocarcinoma [Fatal]
  - Chronic obstructive pulmonary disease [Fatal]
